FAERS Safety Report 5615958-2 (Version None)
Quarter: 2008Q1

REPORT INFORMATION
  Report Type: 
  Country: None (occurrence: None)
  Receive Date: 20080206
  Receipt Date: 20080130
  Transmission Date: 20080703
  Serious: Yes (Other)
  Sender: FDA-Public Use
  Company Number: US-BOEHRINGER INGELHEIM GMBH, GERMANY-2008-BP-01772RO

PATIENT
  Age: 63 Year
  Sex: Female

DRUGS (8)
  1. PREDNISONE [Suspect]
     Indication: ARTHRITIS
     Dates: start: 20061115, end: 20071015
  2. PREDNISONE [Suspect]
     Indication: PNEUMONIA
  3. BONIVA [Suspect]
     Indication: BONE DISORDER
     Route: 065
     Dates: start: 20071015
  4. PLAQUENIL [Concomitant]
     Route: 065
  5. VITAMIN D [Concomitant]
     Route: 065
  6. CALCIUM GLUCONATE [Concomitant]
     Route: 065
  7. METFORMIN HCL [Concomitant]
     Route: 065
  8. CENTRUM [Concomitant]
     Route: 065

REACTIONS (6)
  - ABDOMINAL PAIN UPPER [None]
  - ARTHRITIS [None]
  - BONE DISORDER [None]
  - INFLUENZA LIKE ILLNESS [None]
  - NAUSEA [None]
  - ROTATOR CUFF REPAIR [None]
